FAERS Safety Report 17501182 (Version 1)
Quarter: 2020Q1

REPORT INFORMATION
  Report Type: Spontaneous
  Country: FR (occurrence: FR)
  Receive Date: 20200305
  Receipt Date: 20200305
  Transmission Date: 20200409
  Serious: Yes (Hospitalization)
  Sender: FDA-Public Use
  Company Number: FR-PFIZER INC-2020094569

PATIENT
  Age: 16 Year
  Sex: Female
  Weight: 65 kg

DRUGS (1)
  1. LYRICA [Suspect]
     Active Substance: PREGABALIN
     Indication: INTENTIONAL OVERDOSE
     Dosage: 1200 MG, SINGLE
     Route: 054
     Dates: start: 20200203, end: 20200203

REACTIONS (4)
  - Intentional overdose [Unknown]
  - Intentional product misuse [Unknown]
  - Drug use disorder [Not Recovered/Not Resolved]
  - Poisoning deliberate [Recovered/Resolved]

NARRATIVE: CASE EVENT DATE: 20200203
